FAERS Safety Report 6277435-8 (Version None)
Quarter: 2009Q3

REPORT INFORMATION
  Report Type: 
  Country: None (occurrence: None)
  Receive Date: 20090722
  Receipt Date: 20080729
  Transmission Date: 20100115
  Serious: Yes (Death, Life-Threatening, Other)
  Sender: FDA-Public Use
  Company Number: US-BRISTOL-MYERS SQUIBB COMPANY-14281166

PATIENT
  Age: 74 Year
  Sex: Female

DRUGS (19)
  1. COUMADIN [Suspect]
     Indication: DEEP VEIN THROMBOSIS
     Route: 048
  2. HEPARIN SODIUM 25,000 UNITS IN DEXTROSE 5% [Suspect]
     Indication: ANTICOAGULANT THERAPY
     Dosage: HEPARIN SODIUM AND 5% DEXTROSE INJ IN PLASTIC CONTAINED (50 U/ML). 1 DF = 25,000 UNITS/500 ML
     Route: 042
     Dates: start: 20080514, end: 20080520
  3. HEPARIN SODIUM 25,000 UNITS IN DEXTROSE 5% [Suspect]
     Indication: DEEP VEIN THROMBOSIS
     Dosage: HEPARIN SODIUM AND 5% DEXTROSE INJ IN PLASTIC CONTAINED (50 U/ML). 1 DF = 25,000 UNITS/500 ML
     Route: 042
     Dates: start: 20080514, end: 20080520
  4. SODIUM CHLORIDE [Concomitant]
     Route: 042
  5. TYLENOL (CAPLET) [Concomitant]
  6. ALLOPURINOL [Concomitant]
  7. NORVASC [Concomitant]
  8. ARICEPT [Concomitant]
  9. LASIX [Concomitant]
     Route: 042
  10. LACTULOSE [Concomitant]
  11. ATIVAN [Concomitant]
  12. MORPHINE [Concomitant]
  13. NITROGLYCERIN [Concomitant]
  14. ZOFRAN [Concomitant]
  15. PROTONIX [Concomitant]
  16. VITAMIN K [Concomitant]
  17. COMPAZINE [Concomitant]
  18. PROMETHAZINE [Concomitant]
  19. EFFEXOR [Concomitant]

REACTIONS (2)
  - HAEMOGLOBIN DECREASED [None]
  - HAEMORRHAGE [None]
